FAERS Safety Report 12146057 (Version 1)
Quarter: 2016Q1

REPORT INFORMATION
  Report Type: Spontaneous
  Country: US (occurrence: US)
  Receive Date: 20160304
  Receipt Date: 20160304
  Transmission Date: 20160526
  Serious: No
  Sender: FDA-Public Use
  Company Number: US-PERRIGO-15US005835

PATIENT
  Age: 86 Year
  Sex: Female
  Weight: 65.76 kg

DRUGS (6)
  1. AMLODIPINE [Concomitant]
     Active Substance: AMLODIPINE BESYLATE
     Indication: HYPERTENSION
     Dosage: UNK
     Route: 065
  2. POTASSIUM [Concomitant]
     Active Substance: POTASSIUM
     Indication: SUPPLEMENTATION THERAPY
     Dosage: UNK
     Route: 065
  3. LOVASTATIN. [Concomitant]
     Active Substance: LOVASTATIN
     Indication: BLOOD CHOLESTEROL INCREASED
     Dosage: UNK
     Route: 065
  4. TRIAMTERENE. [Concomitant]
     Active Substance: TRIAMTERENE
     Indication: HYPERTENSION
     Dosage: UNK
     Route: 065
  5. NAPROXEN SODIUM 220 MG 368 [Suspect]
     Active Substance: NAPROXEN SODIUM
     Indication: ARTHRALGIA
     Dosage: 220 MG, BID
     Route: 048
     Dates: start: 20150526, end: 20150529
  6. TROLAMINE SALICYLATE. [Concomitant]
     Active Substance: TROLAMINE SALICYLATE
     Indication: ARTHRALGIA
     Dosage: UNK
     Route: 061
     Dates: start: 20150522

REACTIONS (2)
  - Vaginal haemorrhage [Recovered/Resolved]
  - Drug ineffective [Unknown]

NARRATIVE: CASE EVENT DATE: 20150526
